FAERS Safety Report 24014853 (Version 1)
Quarter: 2024Q2

REPORT INFORMATION
  Report Type: Spontaneous
  Country: FR (occurrence: FR)
  Receive Date: 20240626
  Receipt Date: 20240626
  Transmission Date: 20240715
  Serious: Yes (Hospitalization)
  Sender: FDA-Public Use
  Company Number: None

PATIENT
  Age: 67 Year
  Sex: Female
  Weight: 60 kg

DRUGS (4)
  1. FUROSEMIDE [Suspect]
     Active Substance: FUROSEMIDE
     Indication: Dilated cardiomyopathy
     Route: 048
     Dates: start: 20240325
  2. VALSARTAN [Suspect]
     Active Substance: VALSARTAN
     Indication: Dilated cardiomyopathy
     Route: 048
     Dates: start: 20240325
  3. DAPAGLIFLOZIN [Suspect]
     Active Substance: DAPAGLIFLOZIN
     Indication: Dilated cardiomyopathy
     Route: 048
     Dates: start: 20240325
  4. ALDACTONE [Suspect]
     Active Substance: SPIRONOLACTONE
     Indication: Dilated cardiomyopathy
     Route: 048
     Dates: start: 20240325

REACTIONS (1)
  - Acute kidney injury [Recovering/Resolving]

NARRATIVE: CASE EVENT DATE: 20240426
